FAERS Safety Report 11645050 (Version 1)
Quarter: 2015Q4

REPORT INFORMATION
  Report Type: Spontaneous
  Country: IT (occurrence: IT)
  Receive Date: 20151020
  Receipt Date: 20151020
  Transmission Date: 20160304
  Serious: Yes (Hospitalization)
  Sender: FDA-Public Use
  Company Number: IT-ABBVIE-15P-083-1480174-00

PATIENT
  Age: 71 Year
  Sex: Female
  Weight: 49 kg

DRUGS (3)
  1. EXVIERA [Suspect]
     Active Substance: DASABUVIR
     Indication: CHRONIC HEPATITIS C
     Route: 048
     Dates: start: 20151002, end: 20151006
  2. VIEKIRAX [Suspect]
     Active Substance: OMBITASVIR\PARITAPREVIR\RITONAVIR
     Indication: CHRONIC HEPATITIS C
     Dosage: FORM OF STRENGTH: 12.5MG/75MG/50MG
     Route: 048
     Dates: start: 20151002, end: 20151006
  3. PREVEX [Suspect]
     Active Substance: FELODIPINE
     Indication: HYPERTENSION
     Route: 048

REACTIONS (3)
  - Sinus tachycardia [Unknown]
  - Gravitational oedema [Unknown]
  - Palpitations [Unknown]

NARRATIVE: CASE EVENT DATE: 20151005
